FAERS Safety Report 6430153-5 (Version None)
Quarter: 2009Q4

REPORT INFORMATION
  Report Type: 
  Country: None (occurrence: None)
  Receive Date: 20091106
  Receipt Date: 20091028
  Transmission Date: 20100525
  Serious: Yes (Disabling)
  Sender: FDA-Public Use
  Company Number: GB-JNJFOC-20091009052

PATIENT
  Sex: Female

DRUGS (3)
  1. REMICADE [Suspect]
     Indication: CROHN'S DISEASE
     Dosage: ON INFLIXIMAB 1 YEAR AGO, 7 INFUSIONS
     Route: 042
     Dates: start: 20080101
  2. PENTASA [Concomitant]
  3. AZATHIOPRINE [Concomitant]

REACTIONS (1)
  - RHEUMATOID ARTHRITIS [None]
